FAERS Safety Report 24562402 (Version 1)
Quarter: 2024Q4

REPORT INFORMATION
  Report Type: Spontaneous
  Country: US (occurrence: US)
  Receive Date: 20241029
  Receipt Date: 20241029
  Transmission Date: 20250115
  Serious: Yes (Other)
  Sender: NOVARTIS
  Company Number: US-002147023-NVSC2024US206564

PATIENT
  Sex: Female

DRUGS (2)
  1. TEGRETOL XR [Suspect]
     Active Substance: CARBAMAZEPINE
     Indication: Product used for unknown indication
     Dosage: 200 MG, TID
     Route: 065
     Dates: start: 2001
  2. LAMICTAL [Concomitant]
     Active Substance: LAMOTRIGINE
     Indication: Product used for unknown indication
     Dosage: UNK, BID (EXTENDED RELEASE)
     Route: 065

REACTIONS (8)
  - Asterixis [Unknown]
  - Seizure [Unknown]
  - Gait disturbance [Unknown]
  - Gait inability [Unknown]
  - Fall [Unknown]
  - Balance disorder [Unknown]
  - Withdrawal syndrome [Unknown]
  - Tremor [Unknown]
